FAERS Safety Report 4932338-3 (Version None)
Quarter: 2006Q1

REPORT INFORMATION
  Report Type: 
  Country: None (occurrence: None)
  Receive Date: 20060303
  Receipt Date: 20060221
  Transmission Date: 20060701
  Serious: Yes (Hospitalization)
  Sender: FDA-Public Use
  Company Number: BE-ABBOTT-06P-013-0325633-00

PATIENT
  Age: 9 Year
  Sex: Male

DRUGS (3)
  1. DEPAKENE [Suspect]
     Indication: AFFECTIVE DISORDER
     Route: 048
     Dates: start: 20051110, end: 20051113
  2. DEPAKENE [Suspect]
     Route: 048
     Dates: start: 20051114
  3. RISPERIDONE [Concomitant]
     Indication: DRUG USE FOR UNKNOWN INDICATION
     Dosage: 2MG IN AM 1MG IN PM
     Route: 065

REACTIONS (1)
  - MENTAL DISORDER [None]
